FAERS Safety Report 9068684 (Version 2)
Quarter: 2013Q1

REPORT INFORMATION
  Report Type: Report from Study
  Country: JP (occurrence: JP)
  Receive Date: 20130206
  Receipt Date: 20130329
  Transmission Date: 20140127
  Serious: Yes (Death)
  Sender: FDA-Public Use
  Company Number: JP-009507513-1302JPN001539

PATIENT
  Age: 52 Year
  Sex: Female
  Weight: 50 kg

DRUGS (17)
  1. TEMODAL [Suspect]
     Indication: GLIOBLASTOMA MULTIFORME
     Dosage: 200 MG/SQM, QD
     Route: 041
     Dates: start: 20110314, end: 20110318
  2. TEMODAL [Suspect]
     Dosage: 200 MG/SQM,QD
     Route: 041
     Dates: start: 20110411, end: 20110415
  3. TEMODAL [Suspect]
     Dosage: 200 MG/SQM, QD
     Route: 041
     Dates: start: 20110509, end: 20110513
  4. TEMODAL [Suspect]
     Dosage: 200 MG/SQM, QD
     Route: 041
     Dates: start: 20110606, end: 20110610
  5. TEMODAL [Suspect]
     Dosage: 200 MG/SQM, QD
     Route: 041
     Dates: start: 20110711, end: 20110715
  6. TEMODAL [Suspect]
     Indication: GLIOBLASTOMA MULTIFORME
     Dosage: UNK
     Route: 048
     Dates: start: 20100209, end: 20110214
  7. ALEVIATIN [Suspect]
     Dosage: UNK
     Route: 042
  8. DEXART [Suspect]
     Dosage: UNK
     Route: 042
     Dates: start: 20110419
  9. BACTRAMIN [Concomitant]
     Indication: ANTIFUNGAL PROPHYLAXIS
     Dosage: UNK
     Route: 042
     Dates: start: 20110311, end: 20110715
  10. BFLUID [Concomitant]
     Dosage: UNK
     Route: 042
  11. PRIMPERAN [Concomitant]
     Route: 042
  12. GRANISETRON [Concomitant]
     Indication: PROPHYLAXIS
     Dosage: UNK
     Route: 042
     Dates: start: 20110314, end: 20110715
  13. GLYCEREB [Concomitant]
     Route: 042
  14. DEPAKENE [Concomitant]
     Dosage: UNK, FORMULATION: POR
     Route: 048
  15. DIFENIDOLIN [Concomitant]
     Route: 048
  16. GASPORT D [Concomitant]
     Indication: PROPHYLAXIS
     Dosage: UNK
     Route: 042
     Dates: start: 20110419
  17. SENNOSIDES [Suspect]
     Dosage: UNK, FORMULATION: POR
     Route: 048

REACTIONS (9)
  - Disease progression [Fatal]
  - Constipation [Not Recovered/Not Resolved]
  - Red blood cell count decreased [Recovered/Resolved]
  - Neutrophil count increased [Recovered/Resolved]
  - Lymphocyte count decreased [Recovered/Resolved]
  - Hepatic function abnormal [Not Recovered/Not Resolved]
  - Therapy cessation [None]
  - Drug ineffective [None]
  - Brain neoplasm [None]
